FAERS Safety Report 10238213 (Version 1)
Quarter: 2014Q2

REPORT INFORMATION
  Report Type: Spontaneous
  Country: US (occurrence: None)
  Receive Date: 20140613
  Receipt Date: 20140613
  Transmission Date: 20141212
  Serious: Yes (Hospitalization)
  Sender: FDA-Public Use
  Company Number: None

PATIENT
  Age: 68 Year
  Sex: Male

DRUGS (1)
  1. GABAPENTIN [Suspect]
     Route: 048
     Dates: start: 20130425, end: 20140505

REACTIONS (3)
  - Peripheral swelling [None]
  - Oedema [None]
  - Pain in extremity [None]
